FAERS Safety Report 5636356-1 (Version None)
Quarter: 2008Q1

REPORT INFORMATION
  Report Type: 
  Country: None (occurrence: None)
  Receive Date: 20080225
  Receipt Date: 20080214
  Transmission Date: 20080703
  Serious: Yes (Hospitalization)
  Sender: FDA-Public Use
  Company Number: PHEH2008US01824

PATIENT
  Age: 64 Year
  Sex: Male

DRUGS (40)
  1. COREG [Concomitant]
     Dosage: 25 MG, QD
     Route: 048
     Dates: start: 20060101, end: 20071201
  2. COREG [Concomitant]
     Dosage: 6.25 MG, QD
     Route: 048
     Dates: start: 20071222
  3. ZETIA [Concomitant]
     Dosage: UNK, UNK
     Route: 048
     Dates: start: 20070101
  4. TRICOR [Concomitant]
     Dosage: UNK, UNK
     Route: 048
  5. FOLIC ACID [Concomitant]
     Dosage: 1 MG, QD
     Route: 048
  6. DILAUDID [Concomitant]
     Dosage: 0.5 MG, Q2H
     Route: 042
  7. LORAZEPAM [Concomitant]
     Dosage: 1 MG, Q4H
     Route: 048
  8. LORAZEPAM [Concomitant]
     Dosage: 1 MG, Q4H
     Route: 048
  9. URSODIOL [Concomitant]
  10. FAMOTIDINE [Concomitant]
  11. CIPROFLOXACIN [Concomitant]
  12. AMBIEN [Concomitant]
     Dosage: 10 MG, QHS
     Route: 048
  13. MAGNESIUM SULFATE [Concomitant]
     Dosage: 2 G, ONCE/SINGLE
     Route: 042
     Dates: start: 20080102, end: 20080102
  14. ZOFRAN [Suspect]
     Indication: NAUSEA
     Dosage: 4 MG, Q4H
     Route: 040
     Dates: start: 20071201
  15. CASPOFUNGIN [Concomitant]
     Indication: FUNGAL INFECTION
     Dosage: 50 MG,
     Route: 042
     Dates: start: 20071201
  16. LANTUS [Concomitant]
     Dosage: 14 IU, QHS
     Route: 058
  17. NOVOLOG [Concomitant]
     Dosage: AC + HS, PRN
     Route: 058
  18. SYNTHROID [Concomitant]
     Indication: HYPOTHYROIDISM
     Dosage: 200 UG, QD
     Route: 048
  19. NORCO [Concomitant]
  20. MAGNESIUM OXIDE [Concomitant]
     Dosage: 400 MG, ONCE/SINGLE
     Route: 048
     Dates: start: 20080101, end: 20080101
  21. DEXTROSE [Concomitant]
     Dosage: 12.5 G, PRN
     Route: 042
  22. SENNA [Concomitant]
     Dosage: 1 DF, QD
     Route: 048
  23. COLACE [Concomitant]
     Dosage: 100 MG, QD
     Route: 048
  24. ACYCLOVIR [Concomitant]
     Dosage: 400 MG, QD
     Route: 048
  25. BACTRIM DS [Concomitant]
     Dosage: 1 DF, TIW
     Route: 048
  26. NYSTATIN [Concomitant]
     Dosage: UNK, BID
     Route: 061
  27. CLEOCIN T [Concomitant]
     Dosage: UNK, BID
     Route: 061
  28. FOLTX [Concomitant]
  29. MAGINEX DS [Concomitant]
  30. SINGULAIR [Concomitant]
     Dosage: 10 MG, QW3
     Route: 048
  31. HEPARIN [Concomitant]
     Dosage: 2.5 ML, PRN
     Route: 042
  32. HEPARIN [Concomitant]
     Dosage: 2.5 ML, Q12H
     Route: 042
  33. BENADRYL ^PFIZER WARNER-LAMBERT^ [Concomitant]
     Indication: TRANSFUSION
     Dosage: 25 MG, UNK
     Route: 048
  34. MORPHINE [Concomitant]
     Dosage: 1 MG, Q2H
     Route: 042
  35. TYLENOL (CAPLET) [Concomitant]
     Indication: TRANSFUSION
     Dosage: 650 MG, UNK
     Route: 048
  36. TYLENOL (CAPLET) [Concomitant]
     Dosage: 650 MG, Q4H
     Route: 048
  37. SODIUM BICARBONATE [Concomitant]
     Dosage: 50 MEQ, Q4H
     Route: 042
  38. K-DUR 10 [Concomitant]
     Dosage: 40 MEQ, QD
     Route: 048
     Dates: start: 20080101, end: 20080102
  39. MAALOX /USA/ [Concomitant]
     Dosage: 30 ML, Q4H
     Route: 048
  40. TASIGNA [Suspect]
     Indication: ACUTE LYMPHOCYTIC LEUKAEMIA RECURRENT
     Dosage: 400 MG, BID
     Route: 048
     Dates: start: 20071222

REACTIONS (2)
  - CHEST PAIN [None]
  - RASH ERYTHEMATOUS [None]
